FAERS Safety Report 6609456-7 (Version None)
Quarter: 2010Q1

REPORT INFORMATION
  Report Type: 
  Country: None (occurrence: None)
  Receive Date: 20100223
  Receipt Date: 20100208
  Transmission Date: 20100710
  Serious: Yes (Hospitalization, Other)
  Sender: FDA-Public Use
  Company Number: 2010000481

PATIENT
  Age: 70 Year
  Sex: Male

DRUGS (8)
  1. ERLOTINIB (ERLOTINIB) (TABLET) (ERLOTINIB) [Suspect]
     Indication: NON-SMALL CELL LUNG CANCER
     Dosage: 150 MG, ORAL
     Route: 048
     Dates: start: 20090205, end: 20090224
  2. BLINDED RO 4858696 (IGF-IR ANTAGONIST) [Suspect]
     Indication: NON-SMALL CELL LUNG CANCER
     Dosage: INTRAVENOUS
     Route: 042
     Dates: start: 20090205, end: 20090205
  3. ASPIRIN [Concomitant]
  4. MOLSIDOMINE (MOLSIDOMINE) [Concomitant]
  5. SIMVASTATIN [Concomitant]
  6. ISOSORBIDE DINITRATE [Concomitant]
  7. DELIX PLUS (SALUTEC) [Concomitant]
  8. TAMSULOSIN HCL [Concomitant]

REACTIONS (13)
  - ASTHENIA [None]
  - BLOOD GLUCOSE INCREASED [None]
  - BLOOD PRESSURE SYSTOLIC INCREASED [None]
  - DECREASED APPETITE [None]
  - DERMATITIS [None]
  - DYSGEUSIA [None]
  - FATIGUE [None]
  - FLANK PAIN [None]
  - GENERAL PHYSICAL HEALTH DETERIORATION [None]
  - GLOSSODYNIA [None]
  - HEADACHE [None]
  - URINARY TRACT INFECTION [None]
  - WEIGHT DECREASED [None]
